FAERS Safety Report 12533783 (Version 3)
Quarter: 2016Q4

REPORT INFORMATION
  Report Type: Spontaneous
  Country: US (occurrence: US)
  Receive Date: 20160706
  Receipt Date: 20161207
  Transmission Date: 20170207
  Serious: Yes (Other)
  Sender: FDA-Public Use
  Company Number: US-CELGENEUS-USA-2016070358

PATIENT
  Age: 67 Year
  Sex: Female
  Weight: 85.35 kg

DRUGS (3)
  1. REVLIMID [Suspect]
     Active Substance: LENALIDOMIDE
     Indication: MYELODYSPLASTIC SYNDROME
     Dosage: 10MG
     Route: 048
     Dates: start: 201308
  2. REVLIMID [Suspect]
     Active Substance: LENALIDOMIDE
     Dosage: 10MG
     Route: 048
     Dates: start: 201605
  3. RITUXAN [Concomitant]
     Active Substance: RITUXIMAB
     Indication: NON-HODGKIN^S LYMPHOMA
     Route: 041
     Dates: start: 20160509

REACTIONS (3)
  - Febrile neutropenia [Unknown]
  - Bone pain [Recovering/Resolving]
  - Leukopenia [Unknown]

NARRATIVE: CASE EVENT DATE: 201308
